FAERS Safety Report 26135114 (Version 1)
Quarter: 2025Q4

REPORT INFORMATION
  Report Type: Spontaneous
  Country: US (occurrence: None)
  Receive Date: 20251208
  Receipt Date: 20251208
  Transmission Date: 20260118
  Serious: Yes (Other)
  Sender: FDA-CTU
  Company Number: None

PATIENT
  Age: 35 Year
  Sex: Female
  Weight: 53.55 kg

DRUGS (1)
  1. BUPRENORPHINE\NALOXONE [Suspect]
     Active Substance: BUPRENORPHINE\NALOXONE
     Indication: Drug use disorder
     Dosage: 4 MG DAILY SUBLINGUAL
     Route: 060
     Dates: start: 20241231, end: 20250103

REACTIONS (2)
  - Headache [None]
  - Drug hypersensitivity [None]

NARRATIVE: CASE EVENT DATE: 20241231
